FAERS Safety Report 16654952 (Version 1)
Quarter: 2019Q3

REPORT INFORMATION
  Report Type: Spontaneous
  Country: US (occurrence: US)
  Receive Date: 20190801
  Receipt Date: 20190801
  Transmission Date: 20191004
  Serious: No
  Sender: FDA-Public Use
  Company Number: US-009507513-1907USA016387

PATIENT
  Age: 61 Year
  Sex: Male

DRUGS (1)
  1. INTRON A [Suspect]
     Active Substance: INTERFERON ALFA-2B
     Indication: CUTANEOUS T-CELL LYMPHOMA
     Dosage: 18 MU, THREE TIMES PER WEEK
     Route: 058
     Dates: start: 20181227

REACTIONS (3)
  - Influenza like illness [Unknown]
  - Adverse event [Unknown]
  - Vertigo [Unknown]
